FAERS Safety Report 18795715 (Version 2)
Quarter: 2021Q1

REPORT INFORMATION
  Report Type: Spontaneous
  Country: US (occurrence: US)
  Receive Date: 20210127
  Receipt Date: 20210224
  Transmission Date: 20210419
  Serious: Yes (Life-Threatening, Other)
  Sender: FDA-Public Use
  Company Number: US-JAZZ-2020-US-015587

PATIENT
  Age: 14 Year
  Sex: Male
  Weight: 130.4 kg

DRUGS (12)
  1. ASPARAGINASE [Suspect]
     Active Substance: ASPARAGINASE
     Indication: ACUTE LYMPHOCYTIC LEUKAEMIA
     Dosage: 6000 INTERNATIONAL UNIT (DAYS 3, 5, 7, 11, 15, 43, 45)
     Route: 042
     Dates: start: 20200916
  2. VINCRISTINE [Suspect]
     Active Substance: VINCRISTINE
     Indication: ACUTE LYMPHOCYTIC LEUKAEMIA
     Dosage: 2 MILLIGRAM (DAYS 1, 8, 15, 43)
     Route: 042
     Dates: start: 20200914
  3. RUXOLITINIB [Suspect]
     Active Substance: RUXOLITINIB
     Dosage: UNKNOWN MORNING DOSE
     Route: 048
     Dates: start: 20201101, end: 20201103
  4. THIOGUANINE [Suspect]
     Active Substance: THIOGUANINE
     Indication: ACUTE LYMPHOCYTIC LEUKAEMIA
     Dosage: 40 MILLIGRAM (DAYS 29?42)
     Route: 048
     Dates: start: 20201021, end: 20201031
  5. DEXAMETHASONE. [Suspect]
     Active Substance: DEXAMETHASONE
     Indication: ACUTE LYMPHOCYTIC LEUKAEMIA
     Dosage: 13 MILLIGRAM (1?7, 15?21)
     Route: 048
     Dates: start: 20200914, end: 20201004
  6. CYTARABINE. [Suspect]
     Active Substance: CYTARABINE
     Indication: ACUTE LYMPHOCYTIC LEUKAEMIA
     Dosage: 190 MILLIGRAM (DAYS 29?32, 36?39)
     Route: 042
     Dates: start: 20201021, end: 20201028
  7. DEXAMETHASONE. [Suspect]
     Active Substance: DEXAMETHASONE
     Dosage: UNK
     Dates: start: 20201104
  8. DOXORUBICIN [Suspect]
     Active Substance: DOXORUBICIN
     Indication: ACUTE LYMPHOCYTIC LEUKAEMIA
     Dosage: 63 MILLIGRAM (DAYS 1, 8, 15)
     Route: 042
     Dates: start: 20200914
  9. METHOTREXATE. [Suspect]
     Active Substance: METHOTREXATE
     Indication: ACUTE LYMPHOCYTIC LEUKAEMIA
     Dosage: 15 MILLIGRAM (DAYS 1, 36)
     Route: 037
     Dates: start: 20200914, end: 20201028
  10. THIOGUANINE [Suspect]
     Active Substance: THIOGUANINE
     Dosage: 40 MILLIGRAM
     Route: 048
     Dates: start: 20201101
  11. RUXOLITINIB [Suspect]
     Active Substance: RUXOLITINIB
     Indication: ACUTE LYMPHOCYTIC LEUKAEMIA
     Dosage: 100 MILLIGRAM, BID (DAYS 1?14, 29?42)
     Route: 048
     Dates: start: 20200914, end: 20201031
  12. CYCLOPHOSPHAMIDE. [Suspect]
     Active Substance: CYCLOPHOSPHAMIDE
     Indication: ACUTE LYMPHOCYTIC LEUKAEMIA
     Dosage: 2530 MILLIGRAM (DAY 29)
     Route: 042
     Dates: start: 20201021, end: 20201021

REACTIONS (2)
  - Pneumonia [Not Recovered/Not Resolved]
  - COVID-19 [Not Recovered/Not Resolved]

NARRATIVE: CASE EVENT DATE: 202010
